FAERS Safety Report 9099124 (Version 3)
Quarter: 2013Q2

REPORT INFORMATION
  Report Type: Spontaneous
  Country: US (occurrence: US)
  Receive Date: 20130214
  Receipt Date: 20130506
  Transmission Date: 20140414
  Serious: Yes (Life-Threatening, Disabling, Other)
  Sender: FDA-Public Use
  Company Number: US-MERCK-1302USA003489

PATIENT
  Age: 64 Year
  Sex: Female
  Weight: 85.71 kg

DRUGS (31)
  1. JANUVIA [Suspect]
     Indication: DIABETES MELLITUS
     Dosage: UNK
     Route: 048
     Dates: start: 2008
  2. JANUMET [Suspect]
     Indication: DIABETES MELLITUS
     Route: 048
  3. JANUMET XR [Suspect]
     Indication: DIABETES MELLITUS
     Dosage: 50/1000 BID
     Route: 048
  4. JANUMET XR [Suspect]
     Dosage: 50/1000 BID
     Route: 048
  5. JANUMET XR [Suspect]
     Dosage: 1 TABLET WITH A MEAL QD
  6. GLYBURIDE [Concomitant]
     Dosage: 6 MG, TID
     Route: 048
  7. BENICAR [Concomitant]
     Dosage: 1 TABLET, QD
     Route: 048
  8. HYDROCHLOROTHIAZIDE [Concomitant]
     Dosage: 25 MG, BID
  9. ROBAXIN [Concomitant]
     Dosage: 500 MG, Q8H
     Route: 048
  10. NORCO [Concomitant]
     Dosage: UNK, PRN
     Route: 048
  11. CLONIDINE [Concomitant]
     Dosage: 0.3 MG, QD
     Route: 048
  12. CLONAZEPAM [Concomitant]
     Dosage: 1 MG, QD
     Route: 048
  13. ASPIRIN [Concomitant]
     Dosage: 81 MG, QD
     Route: 048
  14. XANAX [Concomitant]
     Dosage: 0.5 MG, BID
     Route: 048
  15. POTASSIUM (UNSPECIFIED) [Concomitant]
     Dosage: 20 MEQ, QD
     Route: 048
  16. METFORMIN [Concomitant]
     Dosage: 1000, UNK, BID
     Route: 048
  17. SIMVASTATIN TABLETS, USP [Concomitant]
     Dosage: 40 MG, QD
     Route: 048
  18. VITAMINS (UNSPECIFIED) [Concomitant]
  19. HYDROCHLOROTHIAZIDE (+) LOSARTAN POTASSIUM [Concomitant]
     Dosage: 100-12.5 MG QD
     Route: 048
  20. NYSTATIN [Concomitant]
     Dosage: 100000-0.1 UNIT/GM%
     Route: 061
  21. LANTUS [Concomitant]
     Dosage: 100 UNITS/ML, 10 UNITS QD
     Route: 058
  22. UBIDECARENONE [Concomitant]
     Dosage: 100 MG, QD
     Route: 048
  23. FIBER (UNSPECIFIED) [Concomitant]
     Route: 048
  24. LASIX (FUROSEMIDE) [Concomitant]
     Dosage: 40 MG, QD
     Route: 048
  25. CYANOCOBALAMIN [Concomitant]
     Dosage: 2500 MG, QD
     Route: 048
  26. CITRACAL + D [Concomitant]
     Dosage: 250-200 MG-UNIT
     Route: 048
  27. CENTRUM SILVER [Concomitant]
     Route: 048
  28. GLUCOSAMINE [Concomitant]
     Dosage: UNK, QD
     Route: 048
  29. PREVIDENT [Concomitant]
     Dosage: UNK, QD
     Route: 004
  30. ASCORBIC ACID [Concomitant]
     Dosage: 1000 MG, QD
     Route: 048
  31. VITAMIN E [Concomitant]
     Dosage: 1000 UNITS, QD

REACTIONS (9)
  - Pancreatic carcinoma [Not Recovered/Not Resolved]
  - Hepatic cirrhosis [Not Recovered/Not Resolved]
  - Splenomegaly [Unknown]
  - Varices oesophageal [Unknown]
  - Pulmonary mass [Unknown]
  - Cholelithiasis [Unknown]
  - Nodule [Unknown]
  - Renal cyst [Unknown]
  - Hysterectomy [Unknown]
